FAERS Safety Report 5316011-8 (Version None)
Quarter: 2007Q2

REPORT INFORMATION
  Report Type: 
  Country: None (occurrence: None)
  Receive Date: 20070503
  Receipt Date: 20070419
  Transmission Date: 20071010
  Serious: Yes (Other)
  Sender: FDA-Public Use
  Company Number: JP-ROCHE-491694

PATIENT
  Age: 82 Year
  Sex: Female
  Weight: 43 kg

DRUGS (6)
  1. TAMIFLU [Suspect]
     Route: 048
     Dates: start: 20070319, end: 20070319
  2. TAMIFLU [Suspect]
     Route: 048
     Dates: start: 20070320, end: 20070320
  3. DASEN [Concomitant]
     Route: 048
     Dates: start: 20070319, end: 20070320
  4. CALONAL [Concomitant]
     Dosage: TAKEN AS NEEDED.
     Route: 048
     Dates: start: 20070319, end: 20070320
  5. RESPLEN [Concomitant]
     Route: 048
  6. ROHYPNOL [Concomitant]
     Route: 048
     Dates: start: 20070319

REACTIONS (1)
  - MELAENA [None]
